FAERS Safety Report 9435635 (Version 1)
Quarter: 2013Q3

REPORT INFORMATION
  Report Type: Spontaneous
  Country: US (occurrence: US)
  Receive Date: 20130801
  Receipt Date: 20130801
  Transmission Date: 20140515
  Serious: No
  Sender: FDA-Public Use
  Company Number: US-B.I. PHARMACEUTICALS,INC./RIDGEFIELD-2013-BI-22071BP

PATIENT
  Age: 82 Year
  Sex: Female
  Weight: 59 kg

DRUGS (14)
  1. PRADAXA [Suspect]
     Indication: CEREBROVASCULAR ACCIDENT PROPHYLAXIS
     Dosage: 300 MG
     Route: 048
     Dates: start: 20120103, end: 20121105
  2. PRADAXA [Suspect]
     Indication: ATRIAL FIBRILLATION
  3. ACTOPLUS MET [Concomitant]
     Indication: DIABETES MELLITUS
     Route: 048
  4. CALCIUM WITH VITAMIN D [Concomitant]
     Route: 048
  5. ENTERIC COATED ASPIRIN [Concomitant]
     Dosage: 162 MG
     Route: 048
  6. LASIX [Concomitant]
     Route: 048
  7. METOPROLOL [Concomitant]
     Indication: ATRIAL FIBRILLATION
     Dosage: 50 MG
     Route: 048
  8. NORVASC [Concomitant]
     Indication: ATRIAL FIBRILLATION
     Dosage: 5 MG
     Route: 048
  9. VITAMIN B12 [Concomitant]
     Indication: ANAEMIA
  10. LEXAPRO [Concomitant]
     Indication: DEPRESSION
     Dosage: 10 MG
     Route: 048
  11. CLORAZEPATE [Concomitant]
     Indication: ANXIETY
  12. QUESTRAN [Concomitant]
     Indication: DIVERTICULUM
     Dosage: FORMULATION: (POWDER)
  13. VITAMIN C [Concomitant]
     Dosage: 500 MG
     Route: 048
  14. FERROUS SULFATE [Concomitant]
     Indication: ANAEMIA
     Dosage: 975 MG
     Route: 048

REACTIONS (5)
  - Epistaxis [Recovered/Resolved]
  - Conjunctival haemorrhage [Recovered/Resolved]
  - Malaise [Recovered/Resolved]
  - Nausea [Recovered/Resolved]
  - Haemorrhoidal haemorrhage [Recovered/Resolved]
